FAERS Safety Report 20299616 (Version 1)
Quarter: 2022Q1

REPORT INFORMATION
  Report Type: Spontaneous
  Country: CN (occurrence: CN)
  Receive Date: 20220105
  Receipt Date: 20220105
  Transmission Date: 20220424
  Serious: Yes (Other)
  Sender: FDA-Public Use
  Company Number: CN-PFIZER INC-202101858699

PATIENT
  Age: 70 Year
  Sex: Female
  Weight: 62 kg

DRUGS (4)
  1. CYTARABINE [Suspect]
     Active Substance: CYTARABINE
     Indication: Chemotherapy
     Dosage: 0.0169 Q12 D3-D9
     Dates: start: 20211113
  2. ACLARUBICIN [Suspect]
     Active Substance: ACLARUBICIN
     Indication: Chemotherapy
     Dosage: 10MG D3-D6
     Dates: start: 20211113
  3. DECITABINE [Suspect]
     Active Substance: DECITABINE
     Indication: Chemotherapy
     Dosage: 25MG D1-D5
     Dates: start: 20211113
  4. GRANULOCYTE COLONY-STIMULATING FACTOR NOS [Suspect]
     Active Substance: GRANULOCYTE COLONY-STIMULATING FACTOR NOS
     Indication: Chemotherapy
     Dosage: 300UG D0-D9
     Dates: start: 20211113

REACTIONS (8)
  - Pneumonia [Unknown]
  - Pyrexia [Unknown]
  - Nasal obstruction [Unknown]
  - Rhinorrhoea [Unknown]
  - Sneezing [Unknown]
  - Temperature intolerance [Unknown]
  - Productive cough [Unknown]
  - Breath sounds abnormal [Unknown]

NARRATIVE: CASE EVENT DATE: 20211116
